FAERS Safety Report 21296994 (Version 2)
Quarter: 2022Q4

REPORT INFORMATION
  Report Type: Spontaneous
  Country: US (occurrence: US)
  Receive Date: 20220906
  Receipt Date: 20221027
  Transmission Date: 20230112
  Serious: Yes (Death)
  Sender: FDA-Public Use
  Company Number: US-MYLANLABS-2022M1091021

PATIENT
  Age: 75 Year
  Sex: Female
  Weight: 72.2 kg

DRUGS (1)
  1. VANCOMYCIN HYDROCHLORIDE [Suspect]
     Active Substance: VANCOMYCIN HYDROCHLORIDE
     Indication: Pilonidal disease
     Dosage: 1 GRAM, QD (ONCE, OVER 1 HOUR)
     Route: 042
     Dates: start: 20220810, end: 20220810

REACTIONS (1)
  - Pruritus [Fatal]

NARRATIVE: CASE EVENT DATE: 20220810
